FAERS Safety Report 6573937-5 (Version None)
Quarter: 2010Q1

REPORT INFORMATION
  Report Type: 
  Country: None (occurrence: None)
  Receive Date: 20100208
  Receipt Date: 20100127
  Transmission Date: 20100710
  Serious: Yes (Hospitalization)
  Sender: FDA-Public Use
  Company Number: GB-PFIZER INC-2010004127

PATIENT
  Age: 68 Year
  Sex: Female
  Weight: 50 kg

DRUGS (4)
  1. *ERLOTINIB [Suspect]
     Indication: LUNG NEOPLASM MALIGNANT
     Dosage: 100 MG, DAILY
     Route: 048
     Dates: start: 20081217, end: 20100111
  2. BLINDED *NO SUBJECT DRUG [Suspect]
     Indication: LUNG NEOPLASM MALIGNANT
     Dosage: 25 MG, DAILY
     Route: 048
     Dates: start: 20081217, end: 20100111
  3. BLINDED *PLACEBO [Suspect]
     Indication: LUNG NEOPLASM MALIGNANT
     Dosage: 25 MG, DAILY
     Route: 048
     Dates: start: 20081217, end: 20100111
  4. BLINDED SUNITINIB MALATE [Suspect]
     Indication: LUNG NEOPLASM MALIGNANT
     Dosage: 25 MG, DAILY
     Route: 048
     Dates: start: 20081217, end: 20100111

REACTIONS (1)
  - LABYRINTHITIS [None]
